FAERS Safety Report 9779753 (Version 2)
Quarter: 2014Q1

REPORT INFORMATION
  Report Type: Spontaneous
  Country: US (occurrence: US)
  Receive Date: 20131223
  Receipt Date: 20140305
  Transmission Date: 20141002
  Serious: Yes (Other)
  Sender: FDA-Public Use
  Company Number: US-GLAXOSMITHKLINE-A1054376A

PATIENT
  Age: 48 Year
  Sex: Male

DRUGS (2)
  1. PROMACTA [Suspect]
     Indication: IMMUNE THROMBOCYTOPENIC PURPURA
     Dosage: 75MG PER DAY
     Route: 048
     Dates: start: 20130307, end: 20131128
  2. STEROIDS [Suspect]
     Indication: PLATELET COUNT DECREASED
     Route: 065

REACTIONS (3)
  - Splenectomy [Recovered/Resolved]
  - Drug ineffective [Recovered/Resolved]
  - Platelet count decreased [Recovered/Resolved]
